FAERS Safety Report 5854850-5 (Version None)
Quarter: 2008Q3

REPORT INFORMATION
  Report Type: 
  Country: None (occurrence: None)
  Receive Date: 20080822
  Receipt Date: 20080812
  Transmission Date: 20090109
  Serious: Yes (Hospitalization)
  Sender: FDA-Public Use
  Company Number: AU-PFIZER INC-2008068619

PATIENT
  Age: 33 Year
  Sex: Male

DRUGS (6)
  1. TRANEXAMIC ACID (IV) [Suspect]
  2. NOVOSEVEN [Suspect]
     Indication: HAEMORRHAGE
     Route: 042
  3. HEPARIN SODIUM [Concomitant]
  4. FRESH FROZEN PLASMA [Concomitant]
  5. PROTAMINE SULFATE [Concomitant]
  6. CRYOSUPERNATE [Concomitant]

REACTIONS (4)
  - CEREBRAL INFARCTION [None]
  - CEREBRAL THROMBOSIS [None]
  - INTRACRANIAL ANEURYSM [None]
  - SUBARACHNOID HAEMORRHAGE [None]
